FAERS Safety Report 4952853-6 (Version None)
Quarter: 2006Q1

REPORT INFORMATION
  Report Type: 
  Country: None (occurrence: None)
  Receive Date: 20060321
  Receipt Date: 20060309
  Transmission Date: 20060701
  Serious: Yes (Life-Threatening, Disabling)
  Sender: FDA-Public Use
  Company Number: 2006BI000059

PATIENT
  Age: 63 Year
  Sex: Female
  Weight: 74 kg

DRUGS (7)
  1. ZEVALIN [Suspect]
     Indication: BONE MARROW CONDITIONING REGIMEN
     Dosage: 0.4 MCI/KG; 1X; IV
     Route: 042
     Dates: start: 20051201, end: 20051201
  2. RITUXIMAB [Concomitant]
  3. RITUXIMAB [Concomitant]
  4. BCNU [Concomitant]
  5. ETOPOSIDE [Concomitant]
  6. CYTARABINE [Concomitant]
  7. MELPHALAN [Concomitant]

REACTIONS (8)
  - DEPRESSED LEVEL OF CONSCIOUSNESS [None]
  - DERMATITIS [None]
  - HYPOREFLEXIA [None]
  - LUNG INFILTRATION [None]
  - MUCOSAL INFLAMMATION [None]
  - OBSTRUCTIVE AIRWAYS DISORDER [None]
  - PULMONARY TOXICITY [None]
  - STEM CELL TRANSPLANT [None]
